FAERS Safety Report 22372898 (Version 5)
Quarter: 2025Q1

REPORT INFORMATION
  Report Type: Report from Study
  Country: BR (occurrence: BR)
  Receive Date: 20230526
  Receipt Date: 20250227
  Transmission Date: 20250409
  Serious: No
  Sender: TAKEDA
  Company Number: BR-TAKEDA-2023TUS022665

PATIENT
  Age: 48 Year
  Sex: Female
  Weight: 63 kg

DRUGS (2)
  1. VEDOLIZUMAB [Suspect]
     Active Substance: VEDOLIZUMAB
     Indication: Crohn^s disease
  2. VEDOLIZUMAB [Suspect]
     Active Substance: VEDOLIZUMAB
     Dosage: 300 MILLIGRAM, Q4WEEKS
     Dates: start: 20211206

REACTIONS (4)
  - Inappropriate schedule of product administration [Unknown]
  - Product availability issue [Unknown]
  - Anaemia [Unknown]
  - Influenza [Unknown]

NARRATIVE: CASE EVENT DATE: 20230320
